FAERS Safety Report 18554018 (Version 1)
Quarter: 2020Q4

REPORT INFORMATION
  Report Type: Report from Study
  Country: None (occurrence: CA)
  Receive Date: 20201127
  Receipt Date: 20201127
  Transmission Date: 20210114
  Serious: Yes (Hospitalization)
  Sender: FDA-Public Use
  Company Number: CA-ABBVIE-20K-028-3649309-00

PATIENT
  Age: 86 Year
  Sex: Female

DRUGS (1)
  1. HUMIRA [Suspect]
     Active Substance: ADALIMUMAB
     Indication: COLITIS ULCERATIVE
     Route: 058
     Dates: start: 20180724, end: 20201111

REACTIONS (3)
  - Urinary tract infection [Not Recovered/Not Resolved]
  - Loss of consciousness [Unknown]
  - Illness [Unknown]

NARRATIVE: CASE EVENT DATE: 202011
